FAERS Safety Report 8543574-1 (Version None)
Quarter: 2012Q2

REPORT INFORMATION
  Report Type: 
  Country: None (occurrence: None)
  Receive Date: 20120412
  Receipt Date: 20090429
  Transmission Date: 20120825
  Serious: Yes (Other)
  Sender: FDA-Public Use
  Company Number: PHEH2007US05483

PATIENT
  Age: 40 Year
  Sex: Female
  Weight: 92.5 kg

DRUGS (14)
  1. LORTAB [Concomitant]
  2. MS CONTIN [Concomitant]
  3. SENOKOT /UNK/ (SENNA ALEXANDRINA FRUIT) [Concomitant]
  4. AREDIA [Suspect]
     Dosage: 90MG EVERY MONTH, INTRAVENOUS
     Route: 042
  5. AMBIEN [Concomitant]
  6. MIRALAX [Concomitant]
  7. POTASSIUM (POTASSIUM) [Concomitant]
  8. PRILOSEC [Concomitant]
  9. CHROMAGEN (ASCORBIC ACID, CYANOCOBALAMIN, FERROUS FUMARATE, STOMACH DE [Concomitant]
  10. ZOMETA [Suspect]
     Dosage: MONTHLY
  11. BEXTRA [Concomitant]
  12. COUMADIN [Concomitant]
  13. PROCRIT [Concomitant]
  14. DECADRON [Concomitant]

REACTIONS (13)
  - OESOPHAGEAL CANDIDIASIS [None]
  - ANXIETY [None]
  - BONE PAIN [None]
  - PAIN [None]
  - ORAL HERPES [None]
  - INJURY [None]
  - RENAL FAILURE [None]
  - PAIN IN JAW [None]
  - OSTEONECROSIS [None]
  - ANAEMIA [None]
  - CHEST PAIN [None]
  - MALAISE [None]
  - PAIN IN EXTREMITY [None]
